FAERS Safety Report 4378051-5 (Version None)
Quarter: 2004Q2

REPORT INFORMATION
  Report Type: 
  Country: None (occurrence: None)
  Receive Date: 20040608
  Receipt Date: 20040528
  Transmission Date: 20050107
  Serious: Yes (Hospitalization)
  Sender: FDA-Public Use
  Company Number: 04P-055-0252023-00

PATIENT
  Age: 26 Year
  Sex: Female
  Weight: 40 kg

DRUGS (15)
  1. HUMIRA 40 MG/ 0.8 ML PRE-FILLED SYRINGE (HUMIRA) (ADALIMUMAB) (ADALIMU [Suspect]
     Indication: RHEUMATOID ARTHRITIS
     Dosage: 40 MG, SUBCUTANEOUS
     Route: 058
     Dates: start: 20030201, end: 20040107
  2. PROPRANOLOL HYDROCHLORIDE [Concomitant]
  3. SERTRALINE HYDROCHLORIDE [Concomitant]
  4. CLOMIPRAMINE HCL [Concomitant]
  5. CELECOXIB [Concomitant]
  6. EBASTINE [Concomitant]
  7. SPASTOCINE [Concomitant]
  8. ERGOCALCIFEROL [Concomitant]
  9. VITAMIN B COMPLEX CAP [Concomitant]
  10. CALCIUM CARBONATE [Concomitant]
  11. TEMAZEPAM [Concomitant]
  12. DIAZEPAM [Concomitant]
  13. ACETAMINOPHEN [Concomitant]
  14. DICLOMED RAPID [Concomitant]
  15. ROFECOXIB [Concomitant]

REACTIONS (5)
  - DERMATITIS [None]
  - PERIPHERAL COLDNESS [None]
  - RAYNAUD'S PHENOMENON [None]
  - SYNOVITIS [None]
  - VASCULITIS [None]
